FAERS Safety Report 25743620 (Version 1)
Quarter: 2025Q3

REPORT INFORMATION
  Report Type: Spontaneous
  Country: US (occurrence: US)
  Receive Date: 20250831
  Receipt Date: 20250831
  Transmission Date: 20251021
  Serious: No
  Sender: SANOFI AVENTIS
  Company Number: US-SA-2025SA258930

PATIENT
  Sex: Female

DRUGS (19)
  1. DUPIXENT [Suspect]
     Active Substance: DUPILUMAB
     Indication: Chronic obstructive pulmonary disease
     Dosage: 300 MG, QOW
     Route: 058
  2. ALBUTEROL [Concomitant]
     Active Substance: ALBUTEROL
  3. BETAMETHASONE [Concomitant]
     Active Substance: BETAMETHASONE
  4. COLESTIPOL HYDROCHLORIDE [Concomitant]
     Active Substance: COLESTIPOL HYDROCHLORIDE
  5. ESCITALOPRAM [Concomitant]
     Active Substance: ESCITALOPRAM OXALATE
  6. FLONASE ALLERGY RELIEF [Concomitant]
     Active Substance: FLUTICASONE PROPIONATE
  7. KETOCONAZOLE [Concomitant]
     Active Substance: KETOCONAZOLE
  8. LYRICA [Concomitant]
     Active Substance: PREGABALIN
  9. MONTELUKAST [Concomitant]
     Active Substance: MONTELUKAST
  10. MUCINEX [Concomitant]
     Active Substance: GUAIFENESIN
  11. OMEPRAZOLE [Concomitant]
     Active Substance: OMEPRAZOLE
  12. RECLAST [Concomitant]
     Active Substance: ZOLEDRONIC ACID
  13. RIZATRIPTAN [Concomitant]
     Active Substance: RIZATRIPTAN
  14. SOLIFENACIN [Concomitant]
     Active Substance: SOLIFENACIN
  15. TRAZODONE HCL [Concomitant]
     Active Substance: TRAZODONE HYDROCHLORIDE
  16. TRELEGY ELLIPTA [Concomitant]
     Active Substance: FLUTICASONE FUROATE\UMECLIDINIUM BROMIDE\VILANTEROL TRIFENATATE
  17. TYLENOL 8HR [Concomitant]
     Active Substance: ACETAMINOPHEN
  18. VOLTAREN ARTHRITIS PAIN [Concomitant]
     Active Substance: DICLOFENAC SODIUM
  19. ZYRTEC [Concomitant]
     Active Substance: CETIRIZINE HYDROCHLORIDE

REACTIONS (5)
  - Depression [Unknown]
  - Productive cough [Unknown]
  - Fatigue [Unknown]
  - Oral herpes [Unknown]
  - Injection site pain [Unknown]
